FAERS Safety Report 20443442 (Version 1)
Quarter: 2022Q1

REPORT INFORMATION
  Report Type: Report from Study
  Country: JP (occurrence: JP)
  Receive Date: 20220208
  Receipt Date: 20220208
  Transmission Date: 20220423
  Serious: Yes (Other)
  Sender: FDA-Public Use
  Company Number: JP-ASTELLAS-2022JP002237

PATIENT
  Age: 38 Year
  Sex: Male

DRUGS (3)
  1. TACROLIMUS [Interacting]
     Active Substance: TACROLIMUS
     Indication: Immunosuppressant drug therapy
     Dosage: UNK UNK, UNKNOWN FREQ.
     Route: 048
  2. FLUCONAZOLE [Interacting]
     Active Substance: FLUCONAZOLE
     Indication: Antifungal prophylaxis
     Dosage: UNK UNK, UNKNOWN FREQ.
     Route: 048
  3. LETERMOVIR [Interacting]
     Active Substance: LETERMOVIR
     Indication: Antiviral prophylaxis
     Dosage: 480MG/DAY, UNKNOWN FREQ.
     Route: 048

REACTIONS (3)
  - Acute graft versus host disease in skin [Recovered/Resolved]
  - Drug level decreased [Unknown]
  - Drug interaction [Unknown]
